FAERS Safety Report 9245117 (Version 5)
Quarter: 2013Q3

REPORT INFORMATION
  Report Type: Spontaneous
  Country: IT (occurrence: IT)
  Receive Date: 20130422
  Receipt Date: 20130731
  Transmission Date: 20140515
  Serious: Yes (Hospitalization)
  Sender: FDA-Public Use
  Company Number: PHHY2013IT038861

PATIENT
  Age: 51 Year
  Sex: Male

DRUGS (6)
  1. TASIGNA [Suspect]
     Indication: CHRONIC MYELOID LEUKAEMIA
     Dosage: 800 MG, DAILY
     Route: 048
     Dates: start: 20100414, end: 20130328
  2. TASIGNA [Suspect]
     Dosage: 800 MG, PER DAY
     Route: 048
  3. FOLINA [Concomitant]
     Dosage: 5 MG
     Route: 048
  4. AMOXICILLIN [Concomitant]
     Indication: HELICOBACTER INFECTION
     Dosage: 3 G, DAILY
     Dates: start: 20130221
  5. CLARITHROMYCIN [Concomitant]
     Indication: HELICOBACTER INFECTION
     Dosage: 1000 MG, DAILY
     Dates: start: 20130221
  6. OMEPRAZOLE [Concomitant]
     Indication: HELICOBACTER INFECTION
     Dosage: 40 MG, DAILY
     Dates: start: 20130221

REACTIONS (2)
  - Central nervous system inflammation [Recovering/Resolving]
  - Visual acuity reduced [Recovering/Resolving]
